FAERS Safety Report 8188425-2 (Version None)
Quarter: 2012Q1

REPORT INFORMATION
  Report Type: 
  Country: None (occurrence: None)
  Receive Date: 20120306
  Receipt Date: 20120227
  Transmission Date: 20120608
  Serious: Yes (Other)
  Sender: FDA-Public Use
  Company Number: PHHY2010CA15278

PATIENT
  Sex: Female

DRUGS (3)
  1. SANDOSTATIN LAR [Suspect]
     Indication: CARCINOID TUMOUR
     Dosage: 30 MG, EVERY 4 WEEKS
     Route: 030
     Dates: start: 20100206
  2. SANDOSTATIN LAR [Suspect]
     Dosage: 30 MG, UNK
     Route: 030
     Dates: start: 20120214
  3. SANDOSTATIN LAR [Suspect]
     Dosage: 30 MG, UNK
     Route: 030
     Dates: start: 20120224

REACTIONS (6)
  - BLOOD PRESSURE INCREASED [None]
  - NASOPHARYNGITIS [None]
  - INJECTION SITE MASS [None]
  - DRUG ADMINISTRATION ERROR [None]
  - BODY TEMPERATURE INCREASED [None]
  - HYPERHIDROSIS [None]
